FAERS Safety Report 6807713-2 (Version None)
Quarter: 2010Q2

REPORT INFORMATION
  Report Type: 
  Country: None (occurrence: None)
  Receive Date: 20100629
  Receipt Date: 20081125
  Transmission Date: 20101027
  Serious: No
  Sender: FDA-Public Use
  Company Number: US-PFIZER INC-2008098366

PATIENT
  Sex: Male
  Weight: 106.8 kg

DRUGS (8)
  1. VIAGRA [Suspect]
     Indication: ERECTILE DYSFUNCTION
     Dates: start: 20020101
  2. GLIPIZIDE [Concomitant]
  3. METFORMIN HCL [Concomitant]
  4. KLONOPIN [Concomitant]
  5. DRUG USED IN DIABETES [Concomitant]
     Indication: DIABETES MELLITUS
  6. ANTIHYPERTENSIVES [Concomitant]
     Indication: HYPERTENSION
  7. ANTIDEPRESSANTS [Concomitant]
     Indication: DEPRESSION
  8. ALL OTHER THERAPEUTIC PRODUCTS [Concomitant]
     Indication: MENTAL DISORDER

REACTIONS (1)
  - DRUG INEFFECTIVE [None]
